FAERS Safety Report 8041197-4 (Version None)
Quarter: 2012Q1

REPORT INFORMATION
  Report Type: 
  Country: None (occurrence: None)
  Receive Date: 20120112
  Receipt Date: 20120104
  Transmission Date: 20120608
  Serious: Yes (Hospitalization)
  Sender: FDA-Public Use
  Company Number: US-JNJFOC-20111205690

PATIENT
  Sex: Female
  Weight: 79.5 kg

DRUGS (7)
  1. REMICADE [Suspect]
     Route: 042
     Dates: start: 20101216
  2. MERCAPTOPURINE [Concomitant]
  3. BACTRIM [Concomitant]
  4. REMICADE [Suspect]
     Indication: INFLAMMATORY BOWEL DISEASE
     Route: 042
     Dates: start: 20100505
  5. NEXIUM [Concomitant]
  6. PREDNISONE TAB [Concomitant]
  7. ALLOPURINOL [Concomitant]

REACTIONS (1)
  - CROHN'S DISEASE [None]
